FAERS Safety Report 17729714 (Version 2)
Quarter: 2020Q2

REPORT INFORMATION
  Report Type: Spontaneous
  Country: US (occurrence: US)
  Receive Date: 20200430
  Receipt Date: 20200625
  Transmission Date: 20200714
  Serious: Yes (Other)
  Sender: FDA-Public Use
  Company Number: US-PFIZER INC-2020170449

PATIENT
  Age: 77 Year
  Sex: Male

DRUGS (1)
  1. VYNDAQEL [Suspect]
     Active Substance: TAFAMIDIS MEGLUMINE
     Indication: CARDIAC AMYLOIDOSIS
     Dosage: 40 MG, DAILY

REACTIONS (5)
  - Atrioventricular block complete [Unknown]
  - Atrial flutter [Unknown]
  - Off label use [Unknown]
  - Atrial fibrillation [Unknown]
  - Product use issue [Unknown]

NARRATIVE: CASE EVENT DATE: 2019
